FAERS Safety Report 13041582 (Version 1)
Quarter: 2016Q4

REPORT INFORMATION
  Report Type: Spontaneous
  Country: US (occurrence: US)
  Receive Date: 20161219
  Receipt Date: 20161219
  Transmission Date: 20170207
  Serious: No
  Sender: FDA-Public Use
  Company Number: US-ROCHE-1394980

PATIENT
  Sex: Male

DRUGS (4)
  1. METFORMIN [Concomitant]
     Active Substance: METFORMIN HYDROCHLORIDE
     Indication: DIABETES MELLITUS
     Route: 065
  2. ZELBORAF [Suspect]
     Active Substance: VEMURAFENIB
     Route: 065
     Dates: start: 20140226
  3. DECADRON [Concomitant]
     Active Substance: DEXAMETHASONE
     Indication: BRAIN OEDEMA
  4. ZELBORAF [Suspect]
     Active Substance: VEMURAFENIB
     Indication: BRAIN CANCER METASTATIC
     Route: 065

REACTIONS (6)
  - Drug intolerance [Unknown]
  - Lethargy [Unknown]
  - Fatigue [Unknown]
  - Skin exfoliation [Unknown]
  - Sunburn [Recovered/Resolved]
  - Blood count abnormal [Recovering/Resolving]
